FAERS Safety Report 4501266-X (Version None)
Quarter: 2004Q4

REPORT INFORMATION
  Report Type: 
  Country: None (occurrence: None)
  Receive Date: 20041110
  Receipt Date: 20041028
  Transmission Date: 20050328
  Serious: Yes (Hospitalization, Disabling)
  Sender: FDA-Public Use
  Company Number: 2002104168PT

PATIENT
  Age: 64 Year
  Sex: Female

DRUGS (8)
  1. CAMPTOSAR [Suspect]
     Indication: COLORECTAL CANCER
     Dosage: 297 MG, CYCLIC, IV
     Route: 042
     Dates: start: 20020408, end: 20020408
  2. LEUCOVORIN CALCIUM [Suspect]
     Indication: COLORECTAL CANCER
     Dosage: 165 MG, CYCLIC, IV
     Route: 042
     Dates: start: 20020408, end: 20020409
  3. FLUOROURACIL [Suspect]
     Indication: COLORECTAL CANCER
     Dosage: 660 MG, CYCLIC, IV; SEE IMAGE
     Route: 042
     Dates: start: 20020408, end: 20020409
  4. TRAZODONE HCL [Concomitant]
  5. LORAZEPAM [Concomitant]
  6. OXAZEPAM [Concomitant]
  7. METOCLOPRAMIDE [Concomitant]
  8. LOPERAMIDE HCL [Concomitant]

REACTIONS (9)
  - BLOOD SODIUM DECREASED [None]
  - DIABETES MELLITUS [None]
  - FEBRILE NEUTROPENIA [None]
  - GASTROENTERITIS [None]
  - HAEMOGLOBIN DECREASED [None]
  - METABOLIC ACIDOSIS [None]
  - PCO2 DECREASED [None]
  - PLATELET COUNT DECREASED [None]
  - RED BLOOD CELL COUNT DECREASED [None]
